FAERS Safety Report 24347094 (Version 1)
Quarter: 2024Q3

REPORT INFORMATION
  Report Type: Spontaneous
  Country: GB (occurrence: GB)
  Receive Date: 20240921
  Receipt Date: 20240921
  Transmission Date: 20241017
  Serious: Yes (Death, Life-Threatening, Other)
  Sender: DAIICHI
  Company Number: GB-DSJP-DS-2024-100196-GB

PATIENT
  Age: 46 Year
  Sex: Female

DRUGS (1)
  1. ENHERTU [Suspect]
     Active Substance: FAM-TRASTUZUMAB DERUXTECAN-NXKI
     Indication: HER2 positive breast cancer
     Dosage: UNK
     Route: 065
     Dates: start: 202205, end: 202301

REACTIONS (3)
  - Death [Fatal]
  - Metastases to central nervous system [Unknown]
  - Pneumonitis [Unknown]

NARRATIVE: CASE EVENT DATE: 20220901
